FAERS Safety Report 24058083 (Version 2)
Quarter: 2024Q3

REPORT INFORMATION
  Report Type: Report from Study
  Country: CA (occurrence: CA)
  Receive Date: 20240707
  Receipt Date: 20240813
  Transmission Date: 20241017
  Serious: Yes (Other)
  Sender: BRISTOL MYERS SQUIBB
  Company Number: CA-BRISTOL-MYERS SQUIBB COMPANY-2024-096080

PATIENT
  Age: 17 Year
  Sex: Female
  Weight: 55 kg

DRUGS (5)
  1. ORENCIA [Suspect]
     Active Substance: ABATACEPT
     Indication: Temporomandibular pain and dysfunction syndrome
     Dosage: Q WEEKLY
     Route: 058
     Dates: start: 20230721
  2. ORENCIA [Suspect]
     Active Substance: ABATACEPT
     Indication: Temporomandibular pain and dysfunction syndrome
     Route: 042
     Dates: start: 20230721
  3. ORENCIA [Suspect]
     Active Substance: ABATACEPT
     Route: 042
     Dates: start: 20240628
  4. TREXALL [Concomitant]
     Active Substance: METHOTREXATE SODIUM
     Indication: Product used for unknown indication
  5. OTREXUP [Concomitant]
     Active Substance: METHOTREXATE
     Indication: Product used for unknown indication

REACTIONS (8)
  - Jaw disorder [Unknown]
  - Mental impairment [Unknown]
  - Product temperature excursion issue [Unknown]
  - Panic attack [Unknown]
  - Insomnia [Unknown]
  - Anxiety [Unknown]
  - Off label use [Unknown]
  - Inappropriate schedule of product administration [Unknown]

NARRATIVE: CASE EVENT DATE: 20240101
